FAERS Safety Report 10704719 (Version 3)
Quarter: 2015Q2

REPORT INFORMATION
  Report Type: Report from Study
  Country: JP (occurrence: JP)
  Receive Date: 20150112
  Receipt Date: 20150617
  Transmission Date: 20150821
  Serious: Yes (Hospitalization)
  Sender: FDA-Public Use
  Company Number: JP-PFIZER INC-2015003552

PATIENT
  Age: 73 Year
  Sex: Female
  Weight: 36 kg

DRUGS (8)
  1. NOVAMIN [Concomitant]
     Active Substance: PROCHLORPERAZINE MALEATE
     Dosage: 5 MG, 3X/DAY
     Route: 048
     Dates: start: 20140604, end: 20140606
  2. MAGMITT [Concomitant]
     Active Substance: MAGNESIUM OXIDE
     Dosage: 500 MG, 3X/DAY
     Route: 048
     Dates: start: 20140604, end: 20140610
  3. SERENACE [Concomitant]
     Active Substance: HALOPERIDOL
     Dosage: 0.75 MG, 3X/DAY
     Route: 048
     Dates: start: 20140607, end: 20140612
  4. OXYCONTIN [Concomitant]
     Active Substance: OXYCODONE HYDROCHLORIDE
     Dosage: 5 MG, 2X/DAY
     Route: 048
     Dates: end: 20140614
  5. DECADRON [Concomitant]
     Active Substance: DEXAMETHASONE
     Dosage: 4 MG, 2X/DAY
     Route: 048
     Dates: start: 20140605, end: 20140609
  6. TAKEPRON OD [Concomitant]
     Active Substance: LANSOPRAZOLE
     Dosage: 15 MG, 1X/DAY
     Route: 048
     Dates: start: 20140614
  7. XALKORI [Suspect]
     Active Substance: CRIZOTINIB
     Indication: NON-SMALL CELL LUNG CANCER
     Dosage: 250 MG, 2X/DAY
     Route: 048
     Dates: start: 20140604, end: 20140630
  8. LOXONIN [Concomitant]
     Active Substance: LOXOPROFEN SODIUM
     Dosage: 60 MG, 3X/DAY
     Route: 048
     Dates: start: 20140614, end: 20140625

REACTIONS (2)
  - Decreased appetite [Recovered/Resolved]
  - Otitis media [Recovering/Resolving]

NARRATIVE: CASE EVENT DATE: 20140616
